FAERS Safety Report 11836378 (Version 1)
Quarter: 2015Q4

REPORT INFORMATION
  Report Type: Spontaneous
  Country: US (occurrence: None)
  Receive Date: 20151214
  Receipt Date: 20151214
  Transmission Date: 20160305
  Serious: No
  Sender: FDA-Public Use
  Company Number: None

PATIENT
  Age: 85 Year
  Sex: Male

DRUGS (9)
  1. DESOWEN [Concomitant]
     Active Substance: DESONIDE
  2. CLOBETASOL PROP CREAM [Concomitant]
  3. ATORVASTAIN [Concomitant]
  4. BRIMONIDINE TARTRATE. [Concomitant]
     Active Substance: BRIMONIDINE TARTRATE
  5. BICALUTAMIDE. [Concomitant]
     Active Substance: BICALUTAMIDE
  6. XTANDI [Suspect]
     Active Substance: ENZALUTAMIDE
     Indication: PROSTATE CANCER
     Dosage: 4 CAPS?QD?ORAL?THERAPY?AT LEAST 60 DAYS
     Route: 048
  7. TRIAMCINOLONE ACET CREAM [Concomitant]
  8. SYNTHROID [Concomitant]
     Active Substance: LEVOTHYROXINE SODIUM
  9. FLUOROMETHOLONE. [Concomitant]
     Active Substance: FLUOROMETHOLONE

REACTIONS (2)
  - Condition aggravated [None]
  - Eczema [None]

NARRATIVE: CASE EVENT DATE: 20151211
